FAERS Safety Report 7032838-9 (Version None)
Quarter: 2010Q4

REPORT INFORMATION
  Report Type: 
  Country: None (occurrence: None)
  Receive Date: 20101005
  Receipt Date: 20100924
  Transmission Date: 20110411
  Serious: Yes (Death)
  Sender: FDA-Public Use
  Company Number: 645266

PATIENT
  Age: 82 Year
  Sex: Female
  Weight: 80 kg

DRUGS (4)
  1. THIOPENTAL SODIUM [Suspect]
     Indication: ANAESTHESIA PROCEDURE
     Dosage: 175 MG MILLIGRAM(S), INTRAVENOUS
     Route: 042
     Dates: start: 20100626, end: 20100626
  2. SUXAMETHONIUM [Suspect]
     Indication: ANAESTHESIA PROCEDURE
     Dosage: 75 MG MILLIGRAM(S), INTRAVENOUS
     Route: 042
     Dates: start: 20100626, end: 20100626
  3. ALFENTANIL [Suspect]
     Indication: ANAESTHESIA PROCEDURE
     Dosage: 1 MG MILLIGRAM(S), INTRAVENOUS
     Route: 042
     Dates: start: 20100626, end: 20100626
  4. CEFUROXIME [Concomitant]

REACTIONS (2)
  - BRONCHOSPASM [None]
  - CARDIAC ARREST [None]
